FAERS Safety Report 15338363 (Version 6)
Quarter: 2020Q4

REPORT INFORMATION
  Report Type: Report from Study
  Country: US (occurrence: US)
  Receive Date: 20180831
  Receipt Date: 20201016
  Transmission Date: 20210113
  Serious: Yes (Hospitalization, Other)
  Sender: FDA-Public Use
  Company Number: US-TESARO, INC-US-2018TSO03376

PATIENT
  Age: 54 Year
  Sex: Female
  Weight: 76 kg

DRUGS (6)
  1. NIRAPARIB [Suspect]
     Active Substance: NIRAPARIB
     Dosage: 100 MG, QD
     Route: 048
     Dates: start: 20180408, end: 201810
  2. NIRAPARIB [Suspect]
     Active Substance: NIRAPARIB
     Dosage: 100 MG, QD
     Route: 048
  3. NIRAPARIB [Suspect]
     Active Substance: NIRAPARIB
     Dosage: 100 MG, QD
     Route: 048
  4. PRAVASTATIN. [Suspect]
     Active Substance: PRAVASTATIN
     Indication: BLOOD CHOLESTEROL
     Dosage: UNK
     Dates: start: 201908
  5. NIRAPARIB [Suspect]
     Active Substance: NIRAPARIB
     Dosage: 100 MG, QD
     Route: 048
  6. NIRAPARIB [Suspect]
     Active Substance: NIRAPARIB
     Indication: OVARIAN CANCER
     Dosage: 200 MG, UNK
     Route: 048
     Dates: start: 20180405

REACTIONS (11)
  - Blood cholesterol increased [Unknown]
  - Muscle spasms [Recovering/Resolving]
  - Breast discolouration [Recovered/Resolved]
  - Intentional underdose [Not Recovered/Not Resolved]
  - Stress [Not Recovered/Not Resolved]
  - Mastitis [Unknown]
  - Surgery [Recovering/Resolving]
  - Hospitalisation [Recovered/Resolved]
  - Vertigo [Unknown]
  - Headache [Recovered/Resolved]
  - Product dose omission in error [Unknown]

NARRATIVE: CASE EVENT DATE: 2018
